FAERS Safety Report 9984444 (Version 1)
Quarter: 2014Q1

REPORT INFORMATION
  Report Type: Report from Study
  Country: US (occurrence: US)
  Receive Date: 20140307
  Receipt Date: 20140307
  Transmission Date: 20141002
  Serious: No
  Sender: FDA-Public Use
  Company Number: US-ABBVIE-13P-163-1183630-00

PATIENT
  Age: 57 Year
  Sex: Female

DRUGS (6)
  1. HUMIRA [Suspect]
     Indication: ANKYLOSING SPONDYLITIS
     Dates: start: 201311
  2. METHOTREXATE [Concomitant]
     Indication: ANKYLOSING SPONDYLITIS
  3. CYMBALTA [Concomitant]
     Indication: FIBROMYALGIA
  4. FOLIC ACID [Concomitant]
     Indication: DRUG THERAPY
  5. OMEPRAZOLE [Concomitant]
     Indication: GASTRIC DISORDER
  6. VESICARE [Concomitant]
     Indication: HYPERTONIC BLADDER

REACTIONS (6)
  - Muscle tightness [Recovered/Resolved]
  - Injection site pain [Recovered/Resolved]
  - Injection site pain [Recovered/Resolved]
  - Injection site haemorrhage [Unknown]
  - Incorrect dose administered [Unknown]
  - Wrong technique in drug usage process [Unknown]
